FAERS Safety Report 8407579-3 (Version None)
Quarter: 2012Q2

REPORT INFORMATION
  Report Type: 
  Country: None (occurrence: None)
  Receive Date: 20120604
  Receipt Date: 20120522
  Transmission Date: 20120825
  Serious: No
  Sender: FDA-Public Use
  Company Number: US-ASTRAZENECA-2012SE23829

PATIENT
  Age: 47 Year
  Sex: Male

DRUGS (11)
  1. VICODIN [Concomitant]
  2. HYDROMORPHONE HCL [Concomitant]
     Indication: PAIN
  3. CLINDAMYCIN HCL [Concomitant]
  4. CAPRELSA [Suspect]
     Route: 048
  5. MEGESTROL ACETATE [Concomitant]
     Indication: WEIGHT INCREASED
  6. LISINOPRIL [Concomitant]
     Indication: BLOOD PRESSURE ABNORMAL
  7. CAPRELSA [Suspect]
     Route: 048
  8. MORPHINE SULFATE [Concomitant]
     Indication: PAIN
  9. CLOBETASOL PROPIONATE OINTAMENT [Concomitant]
     Indication: PSORIASIS
  10. CAPRELSA [Suspect]
     Indication: BLOOD THYROID STIMULATING HORMONE ABNORMAL
     Route: 048
     Dates: start: 20120329, end: 20120522
  11. CAPRELSA [Suspect]
     Indication: THYROID CANCER
     Route: 048
     Dates: start: 20120329, end: 20120522

REACTIONS (5)
  - DECREASED APPETITE [None]
  - NAUSEA [None]
  - HEPATIC ENZYME INCREASED [None]
  - LIP PAIN [None]
  - FATIGUE [None]
